FAERS Safety Report 7893677-X (Version None)
Quarter: 2011Q4

REPORT INFORMATION
  Report Type: 
  Country: None (occurrence: None)
  Receive Date: 20111104
  Receipt Date: 20111028
  Transmission Date: 20120403
  Serious: Yes (Other)
  Sender: FDA-Public Use
  Company Number: GB-JNJFOC-20110701744

PATIENT
  Age: 38 Year
  Sex: Female

DRUGS (4)
  1. TOPIRAMATE [Suspect]
     Dosage: INITIATED APPROXIMATELY FOUR YEARS PRIOR
     Route: 048
  2. ANTIDEPRESSANTS [Concomitant]
     Route: 065
  3. CLONAZEPAM [Concomitant]
     Dosage: SINCE THE PATIENT WAS 12 YEARS OLD
     Route: 065
  4. TOPIRAMATE [Suspect]
     Indication: EPILEPSY
     Route: 048

REACTIONS (9)
  - WEIGHT DECREASED [None]
  - SOMNOLENCE [None]
  - TOOTH LOSS [None]
  - PALPITATIONS [None]
  - DIARRHOEA [None]
  - FEELING ABNORMAL [None]
  - DEPRESSION [None]
  - ABDOMINAL PAIN UPPER [None]
  - PARAESTHESIA [None]
